FAERS Safety Report 22661393 (Version 1)
Quarter: 2023Q2

REPORT INFORMATION
  Report Type: Spontaneous
  Country: BR (occurrence: BR)
  Receive Date: 20230630
  Receipt Date: 20230630
  Transmission Date: 20230722
  Serious: Yes (Other)
  Sender: FDA-Public Use
  Company Number: BR-AMGEN-BRASP2023110553

PATIENT
  Age: 68 Year
  Sex: Male

DRUGS (2)
  1. PANITUMUMAB [Suspect]
     Active Substance: PANITUMUMAB
     Indication: Colorectal cancer metastatic
     Dosage: 450 MILLIGRAM, Q2WK
     Route: 065
  2. IRINOTECAN [Concomitant]
     Active Substance: IRINOTECAN
     Indication: Colorectal cancer metastatic
     Dosage: UNK
     Route: 065

REACTIONS (9)
  - Oral herpes [Unknown]
  - Stomatitis [Recovered/Resolved]
  - Performance status decreased [Unknown]
  - Nausea [Unknown]
  - Diarrhoea [Unknown]
  - Dermatitis acneiform [Unknown]
  - Hypomagnesaemia [Unknown]
  - Fatigue [Unknown]
  - Alopecia [Unknown]
